FAERS Safety Report 12660855 (Version 3)
Quarter: 2016Q4

REPORT INFORMATION
  Report Type: Spontaneous
  Country: US (occurrence: US)
  Receive Date: 20160817
  Receipt Date: 20161106
  Transmission Date: 20170207
  Serious: No
  Sender: FDA-Public Use
  Company Number: US-RELYPSA-RLY2016001410

PATIENT
  Sex: Female

DRUGS (28)
  1. ALLOPURINOL. [Concomitant]
     Active Substance: ALLOPURINOL
  2. VITAMIN D3 [Concomitant]
     Active Substance: CHOLECALCIFEROL
  3. GLIPIZIDE. [Concomitant]
     Active Substance: GLIPIZIDE
  4. LYRICA [Concomitant]
     Active Substance: PREGABALIN
  5. CITALOPRAM HYDROBROMIDE. [Concomitant]
     Active Substance: CITALOPRAM HYDROBROMIDE
  6. LASIX [Concomitant]
     Active Substance: FUROSEMIDE
  7. PRECOSE [Concomitant]
     Active Substance: ACARBOSE
  8. ELAVIL [Concomitant]
     Active Substance: AMITRIPTYLINE HYDROCHLORIDE
  9. TRADJENTA [Concomitant]
     Active Substance: LINAGLIPTIN
  10. AMLODIPINE BESYLATE. [Concomitant]
     Active Substance: AMLODIPINE BESYLATE
  11. ATORVASTATIN CALCIUM. [Concomitant]
     Active Substance: ATORVASTATIN CALCIUM
  12. NEURONTIN [Concomitant]
     Active Substance: GABAPENTIN
  13. LANTUS [Concomitant]
     Active Substance: INSULIN GLARGINE
  14. LISINOPRIL. [Concomitant]
     Active Substance: LISINOPRIL
  15. FERROUS SULFATE. [Concomitant]
     Active Substance: FERROUS SULFATE
  16. FISH OIL [Concomitant]
     Active Substance: FISH OIL
  17. ECOTRIN [Concomitant]
     Active Substance: ASPIRIN
  18. LIPITOR [Concomitant]
     Active Substance: ATORVASTATIN CALCIUM
  19. CALCIUM 500+D [Concomitant]
     Active Substance: CALCIUM\VITAMIN D
  20. SENSIPAR [Concomitant]
     Active Substance: CINACALCET HYDROCHLORIDE
  21. CELEXA [Concomitant]
     Active Substance: CITALOPRAM HYDROBROMIDE
  22. VITAMIN D                          /00107901/ [Concomitant]
     Active Substance: ERGOCALCIFEROL
  23. MAGNESIUM GLUCONATE [Concomitant]
     Active Substance: MAGNESIUM GLUCONATE
  24. TEGRETOL [Concomitant]
     Active Substance: CARBAMAZEPINE
  25. VELTASSA [Suspect]
     Active Substance: PATIROMER
     Indication: HYPERKALAEMIA
     Dosage: 8.4 G, QD
     Route: 048
  26. VITAMIN B12 [Concomitant]
     Active Substance: CYANOCOBALAMIN
  27. CARDIZEM CD [Concomitant]
     Active Substance: DILTIAZEM HYDROCHLORIDE
  28. FOLIC ACID. [Concomitant]
     Active Substance: FOLIC ACID

REACTIONS (6)
  - Blood magnesium decreased [Unknown]
  - Pruritus [Not Recovered/Not Resolved]
  - Hypersensitivity [Not Recovered/Not Resolved]
  - Constipation [Not Recovered/Not Resolved]
  - Abdominal pain upper [Not Recovered/Not Resolved]
  - Flatulence [Unknown]
